FAERS Safety Report 26164969 (Version 2)
Quarter: 2025Q4

REPORT INFORMATION
  Report Type: Spontaneous
  Country: JP (occurrence: JP)
  Receive Date: 20251216
  Receipt Date: 20251218
  Transmission Date: 20260117
  Serious: Yes (Other)
  Sender: BAYER HEALTHCARE PHARMACEUTICALS INC.
  Company Number: JP-BAYER-2025A164452

PATIENT
  Sex: Male
  Weight: 87 kg

DRUGS (2)
  1. NUBEQA [Suspect]
     Active Substance: DAROLUTAMIDE
     Indication: Prostate cancer
     Dosage: 2 DF, BID, TAKEN NUBEQA IN THE MORNING AND EVENING
     Dates: start: 202309
  2. DEGARELIX [Concomitant]
     Active Substance: DEGARELIX
     Indication: Prostate cancer
     Dosage: UNK UNK, Q4WK, THE INJECTION IS BEING ADMINISTERED INTO THE ABDOMEN

REACTIONS (7)
  - Erectile dysfunction [None]
  - Weight increased [None]
  - Hot flush [None]
  - Osteoporosis [None]
  - Muscular weakness [None]
  - Fatigue [None]
  - Gynaecomastia [None]
